FAERS Safety Report 5645255-0 (Version None)
Quarter: 2008Q1

REPORT INFORMATION
  Report Type: 
  Country: None (occurrence: None)
  Receive Date: 20080229
  Receipt Date: 20080222
  Transmission Date: 20080703
  Serious: Yes (Other)
  Sender: FDA-Public Use
  Company Number: GB-TEVA-167904ISR

PATIENT
  Age: 43 Year
  Sex: Female

DRUGS (2)
  1. CITALOPRAM HYDROBROMIDE [Suspect]
     Indication: DEPRESSION
     Route: 048
     Dates: start: 20060101, end: 20080111
  2. CITALOPRAM HYDROBROMIDE [Suspect]
     Route: 048
     Dates: start: 20080111, end: 20080128

REACTIONS (1)
  - BLOOD SODIUM INCREASED [None]
